FAERS Safety Report 9934709 (Version 3)
Quarter: 2014Q1

REPORT INFORMATION
  Report Type: Report from Study
  Country: JP (occurrence: JP)
  Receive Date: 20140228
  Receipt Date: 20140328
  Transmission Date: 20141002
  Serious: Yes (Hospitalization)
  Sender: FDA-Public Use
  Company Number: JP-TAKEDA-TCI2013A02554

PATIENT
  Age: 77 Year
  Sex: Female
  Weight: 54.1 kg

DRUGS (2)
  1. NESINA TABLETS 12.5MG [Suspect]
     Indication: TYPE 2 DIABETES MELLITUS
     Dosage: 12.5 MG, QD
     Route: 048
     Dates: start: 20101217
  2. METHYCOOL [Concomitant]
     Dosage: 1500 ?G, 1 DAYS
     Route: 048

REACTIONS (1)
  - Transient ischaemic attack [Recovering/Resolving]
